FAERS Safety Report 15122250 (Version 2)
Quarter: 2018Q3

REPORT INFORMATION
  Report Type: Spontaneous
  Country: AU (occurrence: AU)
  Receive Date: 20180709
  Receipt Date: 20180919
  Transmission Date: 20181010
  Serious: Yes (Hospitalization)
  Sender: FDA-Public Use
  Company Number: AU-NAPPMUNDI-GBR-2018-0057222

PATIENT
  Age: 69 Year
  Sex: Female
  Weight: 73.2 kg

DRUGS (24)
  1. CEFAZOLIN [Concomitant]
     Active Substance: CEFAZOLIN
     Indication: PRODUCT USED FOR UNKNOWN INDICATION
     Dosage: UNK
     Route: 065
  2. GLUCOSAMINE + CHONDROITIN          /01625901/ [Concomitant]
     Dosage: UNK
     Dates: start: 2013
  3. SALBUTAMOL [Concomitant]
     Active Substance: ALBUTEROL
     Dosage: UNK
     Dates: start: 2000
  4. VITAMIN D                          /00107901/ [Concomitant]
     Active Substance: ERGOCALCIFEROL
     Dosage: UNK
     Dates: start: 201702
  5. LEVOGLUTAMIDE [Concomitant]
     Active Substance: GLUTAMINE
     Dosage: UNK
     Dates: start: 201711
  6. METFORMIN [Concomitant]
     Active Substance: METFORMIN HYDROCHLORIDE
     Dosage: UNK
     Dates: start: 201602
  7. TEMAZEPAM. [Concomitant]
     Active Substance: TEMAZEPAM
     Dosage: UNK
     Dates: start: 2015
  8. L?LYSINE                           /00919901/ [Concomitant]
     Active Substance: LYSINE
     Dosage: UNK
     Dates: start: 2015
  9. PROMETHAZINE [Concomitant]
     Active Substance: PROMETHAZINE\PROMETHAZINE HYDROCHLORIDE
     Dosage: UNK
     Dates: start: 2015
  10. CITALOPRAM [Concomitant]
     Active Substance: CITALOPRAM HYDROBROMIDE
     Dosage: UNK
     Dates: start: 1998
  11. MAGNESIUM CITRATE. [Concomitant]
     Active Substance: MAGNESIUM CITRATE
     Dosage: UNK
     Dates: start: 201711
  12. TAURINE [Concomitant]
     Active Substance: TAURINE
     Dosage: UNK
     Dates: start: 201711
  13. GARLIC                             /01570501/ [Concomitant]
     Active Substance: GARLIC
     Dosage: UNK
     Dates: start: 2015
  14. CELECOXIB. [Concomitant]
     Active Substance: CELECOXIB
     Dosage: UNK
     Dates: start: 2000
  15. OXYNORM [Suspect]
     Active Substance: OXYCODONE HYDROCHLORIDE
     Indication: PAIN IN EXTREMITY
     Dosage: UNK
     Route: 048
     Dates: start: 20180601, end: 20180602
  16. THYROXINE [Concomitant]
     Active Substance: LEVOTHYROXINE
     Dosage: UNK
     Dates: start: 2008
  17. CENTRUM SILVER                     /02363801/ [Concomitant]
     Active Substance: MINERALS\VITAMINS
     Dosage: UNK
     Dates: start: 20180115
  18. OXYNORM [Suspect]
     Active Substance: OXYCODONE HYDROCHLORIDE
     Indication: HUMERUS FRACTURE
  19. PARACETAMOL/ CAFFEINE [Concomitant]
     Active Substance: ACETAMINOPHEN\CAFFEINE
     Indication: OSTEOARTHRITIS
     Dosage: UNK
     Route: 048
     Dates: start: 2000
  20. SENNA                              /00142201/ [Concomitant]
     Active Substance: SENNA LEAF
     Dosage: UNK
     Dates: start: 2015
  21. COPPER [Concomitant]
     Active Substance: COPPER
     Dosage: UNK
     Dates: start: 201711
  22. GINKGO BILOBA [Concomitant]
     Active Substance: GINKGO
     Dosage: UNK
     Dates: start: 201711
  23. RABEPRAZOLE [Concomitant]
     Active Substance: RABEPRAZOLE
     Dosage: UNK
     Dates: start: 199811
  24. GREEN LIPPED MUSSEL [Concomitant]
     Active Substance: DIETARY SUPPLEMENT
     Dosage: UNK
     Dates: start: 201711

REACTIONS (2)
  - Comminuted fracture [Recovered/Resolved]
  - Fall [Recovered/Resolved]

NARRATIVE: CASE EVENT DATE: 20180601
